FAERS Safety Report 7934926-9 (Version None)
Quarter: 2011Q4

REPORT INFORMATION
  Report Type: 
  Country: None (occurrence: None)
  Receive Date: 20111122
  Receipt Date: 20111020
  Transmission Date: 20120403
  Serious: No
  Sender: FDA-Public Use
  Company Number: US-MYLANLABS-2011S1021832

PATIENT
  Sex: Male

DRUGS (5)
  1. ALBUTEROL SULFATE [Concomitant]
  2. ANTIHYPERTENSIVES [Concomitant]
  3. SPIRIVA [Concomitant]
  4. ZYRTEC [Concomitant]
  5. LANSOPRAZOLE [Suspect]
     Indication: GASTROOESOPHAGEAL REFLUX DISEASE
     Route: 048
     Dates: start: 20111017, end: 20111017

REACTIONS (4)
  - REACTION TO DRUG EXCIPIENTS [None]
  - VERTIGO [None]
  - DIZZINESS [None]
  - NASAL CONGESTION [None]
